FAERS Safety Report 12387899 (Version 1)
Quarter: 2016Q2

REPORT INFORMATION
  Report Type: Spontaneous
  Country: US (occurrence: US)
  Receive Date: 20160520
  Receipt Date: 20160520
  Transmission Date: 20160815
  Serious: Yes (Hospitalization, Other)
  Sender: FDA-Public Use
  Company Number: US-BRISTOL-MYERS SQUIBB COMPANY-BMS-2016-037820

PATIENT
  Age: 7 Decade
  Sex: Male

DRUGS (2)
  1. SOTALOL HYDROCHLORIDE. [Suspect]
     Active Substance: SOTALOL HYDROCHLORIDE
     Indication: PRODUCT USED FOR UNKNOWN INDICATION
     Dosage: 1 DF, QD
     Route: 065
  2. ELIQUIS [Suspect]
     Active Substance: APIXABAN
     Indication: PRODUCT USED FOR UNKNOWN INDICATION
     Dosage: 1 DF, QD
     Route: 065

REACTIONS (8)
  - Mouth haemorrhage [Recovering/Resolving]
  - Intentional overdose [Recovering/Resolving]
  - Lethargy [Recovering/Resolving]
  - Catheter placement [Unknown]
  - Cardiac pacemaker insertion [Unknown]
  - Injection site haemorrhage [Recovering/Resolving]
  - Renal failure [Not Recovered/Not Resolved]
  - Penile haemorrhage [Recovering/Resolving]

NARRATIVE: CASE EVENT DATE: 20160507
